FAERS Safety Report 8812591 (Version 5)
Quarter: 2013Q1

REPORT INFORMATION
  Report Type: Spontaneous
  Country: US (occurrence: US)
  Receive Date: 20120927
  Receipt Date: 20130219
  Transmission Date: 20140127
  Serious: No
  Sender: FDA-Public Use
  Company Number: US-009507513-1209USA010377

PATIENT
  Age: 60 None
  Sex: Female

DRUGS (5)
  1. VICTRELIS [Suspect]
     Indication: HEPATITIS C
     Dosage: 800 MG, TID
     Route: 048
     Dates: start: 20120813
  2. PEGINTRON [Suspect]
     Indication: HEPATITIS C
     Dosage: 120 MCG PER 0.5 ML, QW
     Route: 058
     Dates: start: 20120801
  3. PEGINTRON [Suspect]
     Dosage: 120 MCG PER 0.25 ML OR 0.3ML, QW
     Route: 058
     Dates: start: 20120801
  4. PEGINTRON [Suspect]
     Dosage: 120 MCG PER 0.5 ML, QW
     Route: 058
     Dates: start: 20120731
  5. RIBASPHERE [Suspect]
     Indication: HEPATITIS C
     Dosage: 600MG IN THE MORNING AND 600 MG IN THE EVENING

REACTIONS (20)
  - Paraesthesia oral [Unknown]
  - Tongue disorder [Unknown]
  - Glossodynia [Unknown]
  - Tongue discolouration [Unknown]
  - Pruritus [Unknown]
  - Diarrhoea [Unknown]
  - Nausea [Unknown]
  - Vomiting [Unknown]
  - Rash [Unknown]
  - Dry skin [Unknown]
  - Rash papular [Unknown]
  - Fatigue [Unknown]
  - Red blood cell count decreased [Unknown]
  - White blood cell count decreased [Unknown]
  - Platelet count decreased [Unknown]
  - Eye infection [Recovering/Resolving]
  - Weight decreased [Unknown]
  - Respiratory tract infection [Recovering/Resolving]
  - Sinus congestion [Recovering/Resolving]
  - Productive cough [Recovering/Resolving]
